FAERS Safety Report 16943250 (Version 3)
Quarter: 2019Q4

REPORT INFORMATION
  Report Type: Report from Study
  Country: CN (occurrence: CN)
  Receive Date: 20191021
  Receipt Date: 20191217
  Transmission Date: 20200122
  Serious: Yes (Death, Hospitalization)
  Sender: FDA-Public Use
  Company Number: PHHO2015CN012367

PATIENT
  Age: 46 Year
  Sex: Male
  Weight: 69.4 kg

DRUGS (29)
  1. CERITINIB [Suspect]
     Active Substance: CERITINIB
     Dosage: 600 MG, QD
     Route: 048
     Dates: start: 20150825, end: 20151130
  2. CERITINIB [Suspect]
     Active Substance: CERITINIB
     Dosage: 300 MG, QD
     Route: 048
     Dates: start: 20160309, end: 20191007
  3. ALPHA-CHYMOTRYPSINE [Concomitant]
     Dosage: 4000 U, QD
     Route: 055
     Dates: start: 20150811
  4. CERITINIB [Suspect]
     Active Substance: CERITINIB
     Dosage: 300 MG, QD
     Route: 048
     Dates: start: 20160303, end: 20160306
  5. ALPHA-CHYMOTRYPSINE [Concomitant]
     Indication: PROPHYLAXIS
     Dosage: 4000 U, QD
     Route: 055
     Dates: start: 20150729
  6. GLUTATHIONE [Concomitant]
     Active Substance: GLUTATHIONE
     Dosage: 1.8 G, QD
     Route: 042
     Dates: start: 20150729
  7. VENTOLIN [Concomitant]
     Active Substance: ALBUTEROL SULFATE
     Dosage: 2 ML, QD
     Route: 055
     Dates: start: 20150811
  8. VENTOLIN [Concomitant]
     Active Substance: ALBUTEROL SULFATE
     Dosage: 2 ML, QD
     Route: 055
     Dates: start: 20150812
  9. ALPHA-CHYMOTRYPSINE [Concomitant]
     Indication: PROPHYLAXIS
     Dosage: 4000 U, QD
     Route: 055
     Dates: start: 20150728
  10. ALPHA-CHYMOTRYPSINE [Concomitant]
     Indication: PROPHYLAXIS
     Dosage: 4000 U, BID
     Route: 055
     Dates: start: 20150806
  11. CODEINE [Concomitant]
     Active Substance: CODEINE
     Dosage: 30 MG, QD
     Route: 048
     Dates: start: 20150813
  12. VENTOLIN [Concomitant]
     Active Substance: ALBUTEROL SULFATE
     Indication: PROPHYLAXIS
     Dosage: 2 ML, QD
     Route: 055
     Dates: start: 20150728
  13. VENTOLIN [Concomitant]
     Active Substance: ALBUTEROL SULFATE
     Indication: PROPHYLAXIS
     Dosage: 2 ML, QD
     Route: 055
     Dates: start: 20150729
  14. ALPHA-CHYMOTRYPSINE [Concomitant]
     Dosage: 4000 U, QD
     Route: 055
     Dates: start: 20150812
  15. FURACILIN [Concomitant]
     Indication: PROPHYLAXIS
     Dosage: 50 ML, QD
     Route: 048
     Dates: start: 20150803
  16. AMBROXOL [Concomitant]
     Active Substance: AMBROXOL
     Dosage: 30 MG, QD
     Route: 042
     Dates: start: 20150812
  17. ALBUMIN (HUMAN) [Concomitant]
     Active Substance: ALBUMIN HUMAN
     Indication: PROPHYLAXIS
     Dosage: 50 ML, QD
     Route: 042
     Dates: start: 20150813
  18. CERITINIB [Suspect]
     Active Substance: CERITINIB
     Indication: NON-SMALL CELL LUNG CANCER
     Dosage: 750 MG, QD
     Route: 048
     Dates: start: 20150413, end: 20150726
  19. GLUTATHIONE [Concomitant]
     Active Substance: GLUTATHIONE
     Dosage: 1.8 G, QD
     Route: 042
     Dates: start: 20150728
  20. POLYENE PHOSPHATIDYLCHOLINE [Concomitant]
     Active Substance: PHOSPHOLIPID
     Indication: PROPHYLAXIS
     Dosage: 15 ML, QD
     Route: 042
     Dates: start: 20150728
  21. POLYENE PHOSPHATIDYLCHOLINE [Concomitant]
     Active Substance: PHOSPHOLIPID
     Dosage: 15 ML, QD
     Route: 042
     Dates: start: 20150729
  22. SODIUM CHLORIDE. [Concomitant]
     Active Substance: SODIUM CHLORIDE
     Indication: PROPHYLAXIS
     Dosage: 50 ML, QD
     Route: 042
     Dates: start: 20150728
  23. CODEINE [Concomitant]
     Active Substance: CODEINE
     Indication: ANTITUSSIVE THERAPY
     Dosage: 30 MG, QD
     Route: 048
     Dates: start: 20150812, end: 20150812
  24. CERITINIB [Suspect]
     Active Substance: CERITINIB
     Dosage: 450 MG, QD
     Route: 048
     Dates: start: 20151217, end: 20160218
  25. AMBROXOL [Concomitant]
     Active Substance: AMBROXOL
     Indication: PROPHYLAXIS
     Dosage: 30 MG, QD
     Route: 042
     Dates: start: 20150729
  26. GLUTATHIONE [Concomitant]
     Active Substance: GLUTATHIONE
     Indication: PROPHYLAXIS
     Dosage: 1.8 G, QD
     Route: 042
     Dates: start: 20150727
  27. VENTOLIN [Concomitant]
     Active Substance: ALBUTEROL SULFATE
     Indication: PROPHYLAXIS
     Dosage: 2 ML, BID
     Route: 055
     Dates: start: 20150806
  28. AMBROXOL [Concomitant]
     Active Substance: AMBROXOL
     Dosage: 30 MG, BID
     Route: 042
     Dates: start: 20150806
  29. AMBROXOL [Concomitant]
     Active Substance: AMBROXOL
     Dosage: 30 MG, QD
     Route: 042
     Dates: start: 20150811

REACTIONS (4)
  - Hyperglycaemia [Recovered/Resolved]
  - Altered state of consciousness [Fatal]
  - Pneumonia [Recovered/Resolved]
  - Liver function test abnormal [Recovered/Resolved]

NARRATIVE: CASE EVENT DATE: 20150710
